FAERS Safety Report 4316987-1 (Version None)
Quarter: 2004Q1

REPORT INFORMATION
  Report Type: 
  Country: None (occurrence: None)
  Receive Date: 20040312
  Receipt Date: 20040303
  Transmission Date: 20041129
  Serious: Yes (Hospitalization)
  Sender: FDA-Public Use
  Company Number: 230849K04USA

PATIENT
  Age: 49 Year
  Sex: Female

DRUGS (5)
  1. REBIF [Suspect]
     Indication: MULTIPLE SCLEROSIS
     Dosage: 44 MCG, 3 IN 1 WEEKS, NOT REPORTED
     Dates: start: 20030122
  2. LAMOTRIGINE [Concomitant]
  3. ESTRATEST H.S. [Concomitant]
  4. ESCITALOPRAM [Concomitant]
  5. ESOMEPRAZOLE [Concomitant]

REACTIONS (13)
  - CONSTIPATION [None]
  - CONVULSION [None]
  - DIVERTICULITIS [None]
  - GASTROINTESTINAL DISORDER [None]
  - INJECTION SITE BURNING [None]
  - INJECTION SITE MASS [None]
  - INJECTION SITE PAIN [None]
  - INJECTION SITE REACTION [None]
  - LOSS OF CONSCIOUSNESS [None]
  - MUSCLE SPASMS [None]
  - RESTLESS LEGS SYNDROME [None]
  - SEXUAL DYSFUNCTION [None]
  - SKIN CANCER [None]
